FAERS Safety Report 7898862-9 (Version None)
Quarter: 2011Q4

REPORT INFORMATION
  Report Type: 
  Country: None (occurrence: None)
  Receive Date: 20111107
  Receipt Date: 20110711
  Transmission Date: 20120403
  Serious: No
  Sender: FDA-Public Use
  Company Number: US-BAYER-2011-082778

PATIENT
  Age: 82 Year
  Sex: Female
  Weight: 73 kg

DRUGS (9)
  1. PHILLIPS' MILK OF MAGNESIA LIQUID MINT [Suspect]
     Dosage: USED ONLY ONE TIME
     Route: 048
     Dates: start: 20110709
  2. METOPROLOL [Concomitant]
     Dosage: UNK
     Route: 048
  3. GLIPIZIDE [Concomitant]
     Dosage: UNK
     Route: 048
  4. PLAVIX [Concomitant]
     Dosage: UNK
     Route: 048
  5. ALPRAZOLAM [Concomitant]
     Dosage: UNK
     Route: 048
  6. METFORMIN HCL [Concomitant]
     Dosage: UNK
     Route: 048
  7. OSCAL [Concomitant]
     Dosage: UNK
     Route: 048
  8. VITAMIN B-12 [Concomitant]
     Dosage: UNK
     Route: 048
  9. ASPIRIN [Suspect]
     Dosage: UNK
     Route: 048

REACTIONS (2)
  - ABDOMINAL PAIN UPPER [None]
  - DIARRHOEA [None]
